FAERS Safety Report 8436763-8 (Version None)
Quarter: 2012Q2

REPORT INFORMATION
  Report Type: 
  Country: None (occurrence: None)
  Receive Date: 20120614
  Receipt Date: 20120605
  Transmission Date: 20120825
  Serious: Yes (Other)
  Sender: FDA-Public Use
  Company Number: US-ASTRAZENECA-2012SE38027

PATIENT
  Age: 64 Year
  Sex: Female

DRUGS (9)
  1. LISINOPRIL AND HYDROCHLOROTHIAZIDE [Suspect]
     Indication: HYPERTENSION
     Route: 048
  2. CRESTOR [Suspect]
     Indication: GASTROOESOPHAGEAL REFLUX DISEASE
     Route: 048
  3. METOPROLOL TARTRATE [Suspect]
     Route: 065
  4. CRANBERRY PILLS [Concomitant]
  5. CITALOPRAM HYDROBROMIDE [Suspect]
     Indication: DEPRESSION
     Route: 065
  6. CRESTOR [Suspect]
     Indication: BLOOD CHOLESTEROL ABNORMAL
     Route: 048
  7. NEXIUM [Suspect]
     Route: 048
  8. AMITRIPTYLINE HCL [Suspect]
     Indication: DEPRESSION
     Route: 065
  9. ACIDOPHILUS [Concomitant]

REACTIONS (14)
  - TYPE 2 DIABETES MELLITUS [None]
  - THYROID FUNCTION TEST ABNORMAL [None]
  - GASTROOESOPHAGEAL REFLUX DISEASE [None]
  - BLOOD CHOLESTEROL INCREASED [None]
  - DEPRESSION [None]
  - OFF LABEL USE [None]
  - ARTHRITIS [None]
  - GLAUCOMA [None]
  - EPILEPSY [None]
  - BRONCHITIS CHRONIC [None]
  - EMPHYSEMA [None]
  - HYPERTENSION [None]
  - ENDOCRINE DISORDER [None]
  - ASTHMA [None]
